FAERS Safety Report 18540272 (Version 1)
Quarter: 2020Q4

REPORT INFORMATION
  Report Type: Spontaneous
  Country: US (occurrence: US)
  Receive Date: 20201124
  Receipt Date: 20201124
  Transmission Date: 20210114
  Serious: Yes (Life-Threatening)
  Sender: FDA-Public Use
  Company Number: None

PATIENT
  Age: 92 Year
  Sex: Male
  Weight: 75 kg

DRUGS (1)
  1. TIZANIDINE. [Suspect]
     Active Substance: TIZANIDINE
     Indication: MUSCLE STRAIN
     Route: 048
     Dates: start: 20201111, end: 20201113

REACTIONS (3)
  - Dizziness [None]
  - Dysarthria [None]
  - Atrioventricular block complete [None]

NARRATIVE: CASE EVENT DATE: 20201112
